FAERS Safety Report 14298846 (Version 1)
Quarter: 2017Q4

REPORT INFORMATION
  Report Type: Spontaneous
  Country: US (occurrence: US)
  Receive Date: 20171218
  Receipt Date: 20171218
  Transmission Date: 20180321
  Serious: No
  Sender: FDA-Public Use
  Company Number: US-009507513-1608USA007304

PATIENT

DRUGS (3)
  1. M-M-R II [Suspect]
     Active Substance: MEASLES VIRUS STRAIN ENDERS^ ATTENUATED EDMONSTON LIVE ANTIGEN\MUMPS VIRUS STRAIN B LEVEL JERYL LYNN LIVE ANTIGEN\RUBELLA VIRUS STRAIN WISTAR RA 27/3 LIVE ANTIGEN
     Indication: PROPHYLAXIS
     Route: 058
     Dates: start: 20160811, end: 20160811
  2. VAQTA [Suspect]
     Active Substance: HEPATITIS A VIRUS STRAIN CR 326F ANTIGEN (FORMALDEHYDE INACTIVATED)
     Indication: PROPHYLAXIS
     Route: 058
     Dates: start: 20160811, end: 20160811
  3. STERILE DILUENT [Suspect]
     Active Substance: WATER

REACTIONS (4)
  - Incorrect route of drug administration [Unknown]
  - Product preparation error [Unknown]
  - No adverse event [Unknown]
  - Product label confusion [Unknown]

NARRATIVE: CASE EVENT DATE: 20160811
